FAERS Safety Report 19967314 (Version 1)
Quarter: 2021Q4

REPORT INFORMATION
  Report Type: Spontaneous
  Country: US (occurrence: US)
  Receive Date: 20211019
  Receipt Date: 20211019
  Transmission Date: 20220303
  Serious: Yes (Other)
  Sender: FDA-Public Use
  Company Number: US-SA-SAC20211013000234

PATIENT
  Age: 53 Year
  Sex: Male

DRUGS (1)
  1. ZANTAC [Suspect]
     Active Substance: RANITIDINE HYDROCHLORIDE
     Indication: Dyspepsia
     Dosage: 25 MG, QD
     Dates: start: 201608, end: 201704

REACTIONS (5)
  - Bladder cancer stage IV [Unknown]
  - Colorectal cancer stage IV [Unknown]
  - Gastric cancer stage IV [Unknown]
  - Small intestine carcinoma stage IV [Unknown]
  - Brain neoplasm malignant [Unknown]

NARRATIVE: CASE EVENT DATE: 20181001
